FAERS Safety Report 9060626 (Version 2)
Quarter: 2013Q2

REPORT INFORMATION
  Report Type: Spontaneous
  Country: DE (occurrence: DE)
  Receive Date: 20130212
  Receipt Date: 20130417
  Transmission Date: 20140414
  Serious: Yes (Hospitalization, Other)
  Sender: FDA-Public Use
  Company Number: DE-UCBSA-077933

PATIENT
  Age: 64 Year
  Sex: Female
  Weight: 85 kg

DRUGS (7)
  1. CIMZIA [Suspect]
     Indication: RHEUMATOID ARTHRITIS
     Route: 058
     Dates: start: 20100812
  2. MTX [Concomitant]
     Indication: RHEUMATOID ARTHRITIS
     Route: 058
     Dates: start: 2010
  3. PREDNISOLONE [Concomitant]
     Route: 048
     Dates: start: 2010
  4. FOLIC ACID [Concomitant]
     Dosage: 1-0-0, EVERY THREE DAYS,LAST DOSE 01/FEB
  5. SIFROL [Concomitant]
     Dosage: 0.7 MG (8/13/18 HOURS)
  6. XARELTO [Concomitant]
     Dates: end: 20130216
  7. XARELTO [Concomitant]
     Dates: start: 20130216

REACTIONS (2)
  - Pulmonary embolism [Recovering/Resolving]
  - Thrombosis [Recovering/Resolving]
